FAERS Safety Report 8831838 (Version 2)
Quarter: 2012Q4

REPORT INFORMATION
  Report Type: Report from Study
  Country: US (occurrence: US)
  Receive Date: 20121009
  Receipt Date: 20121017
  Transmission Date: 20130627
  Serious: Yes (Hospitalization)
  Sender: FDA-Public Use
  Company Number: US-ROCHE-1140229

PATIENT
  Age: 52 Year
  Sex: Female
  Weight: 59.4 kg

DRUGS (2)
  1. BEVACIZUMAB [Suspect]
     Indication: OVARIAN EPITHELIAL CANCER
     Dosage: last dose prior to sae 16 jul 2012
     Route: 065
     Dates: start: 20110330
  2. ESTRADIOL [Concomitant]

REACTIONS (3)
  - Haemorrhage intracranial [Recovering/Resolving]
  - Cerebrovascular accident [Recovering/Resolving]
  - Convulsion [Recovering/Resolving]
